FAERS Safety Report 10137119 (Version 1)
Quarter: 2014Q2

REPORT INFORMATION
  Report Type: Report from Study
  Country: US (occurrence: US)
  Receive Date: 20140429
  Receipt Date: 20140429
  Transmission Date: 20141212
  Serious: No
  Sender: FDA-Public Use
  Company Number: US-ABBVIE-14P-163-1220758-00

PATIENT
  Age: 45 Year
  Sex: Male
  Weight: 72.64 kg

DRUGS (2)
  1. ANDROGEL [Suspect]
     Indication: BLOOD TESTOSTERONE DECREASED
     Dates: start: 20140401
  2. MULTIVITAMIN [Concomitant]
     Indication: VITAMIN SUPPLEMENTATION

REACTIONS (3)
  - Pain [Recovering/Resolving]
  - Abnormal dreams [Recovering/Resolving]
  - Insomnia [Recovering/Resolving]
